FAERS Safety Report 4553880-3 (Version None)
Quarter: 2005Q1

REPORT INFORMATION
  Report Type: 
  Country: None (occurrence: None)
  Receive Date: 20050113
  Receipt Date: 20050113
  Transmission Date: 20050727
  Serious: Yes (Hospitalization)
  Sender: FDA-Public Use
  Company Number: None

PATIENT
  Sex: Male
  Weight: 65.1 kg

DRUGS (4)
  1. CISPLATIN [Suspect]
     Indication: NON-SMALL CELL LUNG CANCER
     Dosage: 104 MG IV
     Route: 042
     Dates: start: 20041229
  2. DOCETAXEL 60MG/M2 [Suspect]
     Indication: NON-SMALL CELL LUNG CANCER
     Dosage: 104 MG IV
     Route: 042
     Dates: start: 20041229
  3. GLEEVEC [Concomitant]
  4. CHEMO [Concomitant]

REACTIONS (2)
  - ABDOMINAL PAIN [None]
  - ULCER [None]
